FAERS Safety Report 15227813 (Version 1)
Quarter: 2018Q3

REPORT INFORMATION
  Report Type: Spontaneous
  Country: US (occurrence: US)
  Receive Date: 20180706
  Receipt Date: 20180706
  Transmission Date: 20181010
  Serious: No
  Sender: FDA-Public Use
  Company Number: None

PATIENT
  Age: 69 Year
  Sex: Male

DRUGS (13)
  1. MULTI VIT [Concomitant]
  2. FLOMAX [Concomitant]
     Active Substance: TAMSULOSIN HYDROCHLORIDE
  3. ATORVASTATIN [Concomitant]
     Active Substance: ATORVASTATIN
  4. TRAZODONE [Concomitant]
     Active Substance: TRAZODONE HYDROCHLORIDE
  5. VITAMIN D3 [Concomitant]
     Active Substance: CHOLECALCIFEROL
  6. CARB/LEVO [Concomitant]
     Active Substance: CARBIDOPA\LEVODOPA
  7. VESICARE [Concomitant]
     Active Substance: SOLIFENACIN SUCCINATE
  8. NORTHERA [Suspect]
     Active Substance: DROXIDOPA
     Indication: ORTHOSTATIC HYPOTENSION
     Route: 048
     Dates: start: 20170706
  9. MAGNESIUM [Concomitant]
     Active Substance: MAGNESIUM
  10. PROBIOTIC [Concomitant]
     Active Substance: PROBIOTICS NOS
  11. COQ10 [Concomitant]
     Active Substance: UBIDECARENONE
  12. NEXIUM [Concomitant]
     Active Substance: ESOMEPRAZOLE MAGNESIUM
  13. FLOVENT [Concomitant]
     Active Substance: FLUTICASONE PROPIONATE

REACTIONS (1)
  - Glaucoma [None]

NARRATIVE: CASE EVENT DATE: 201806
